FAERS Safety Report 24583582 (Version 2)
Quarter: 2024Q4

REPORT INFORMATION
  Report Type: Report from Study
  Country: US (occurrence: US)
  Receive Date: 20241106
  Receipt Date: 20241113
  Transmission Date: 20250114
  Serious: No
  Sender: AMGEN
  Company Number: US-AMGEN-USASL2024169106

PATIENT
  Age: 70 Year
  Sex: Male

DRUGS (5)
  1. TEPEZZA [Suspect]
     Active Substance: TEPROTUMUMAB-TRBW
     Indication: Endocrine ophthalmopathy
     Dosage: UNK, FIRST COURSE
     Route: 040
  2. TEPEZZA [Suspect]
     Active Substance: TEPROTUMUMAB-TRBW
     Indication: Toxic goitre
     Dosage: UNK (FIRST INFUSION)
     Route: 042
     Dates: start: 20240702
  3. TEPEZZA [Suspect]
     Active Substance: TEPROTUMUMAB-TRBW
     Dosage: UNK UNK, Q4WK, SECOND INFUSION
     Route: 042
     Dates: start: 202407
  4. TEPEZZA [Suspect]
     Active Substance: TEPROTUMUMAB-TRBW
     Dosage: UNK UNK, Q4WK, THIRD INFUSION
     Route: 042
     Dates: start: 20240822
  5. TEPEZZA [Suspect]
     Active Substance: TEPROTUMUMAB-TRBW
     Dosage: UNK, SIXTH INFUSION OF SECOND COURSE
     Route: 040
     Dates: start: 20241024

REACTIONS (5)
  - Blood glucose increased [Unknown]
  - Intentional product misuse [Unknown]
  - Off label use [Unknown]
  - Blood creatine increased [Unknown]
  - Glomerular filtration rate abnormal [Unknown]

NARRATIVE: CASE EVENT DATE: 20240822
